FAERS Safety Report 5243436-1 (Version None)
Quarter: 2007Q1

REPORT INFORMATION
  Report Type: 
  Country: None (occurrence: None)
  Receive Date: 20070221
  Receipt Date: 20070212
  Transmission Date: 20070707
  Serious: Yes (Hospitalization)
  Sender: FDA-Public Use
  Company Number: FR-SANOFI-SYNTHELABO-A02200700454

PATIENT
  Age: 35 Year
  Sex: Male

DRUGS (3)
  1. ZOLPIDEM TARTRATE [Suspect]
     Indication: DRUG DEPENDENCE
     Dosage: UNK
     Route: 013
     Dates: start: 20070101, end: 20070101
  2. METHADONE HCL [Concomitant]
     Indication: DRUG DEPENDENCE
     Dosage: 30 MG
     Route: 048
  3. METHADONE HCL [Concomitant]
     Dosage: 30 MG
     Route: 048

REACTIONS (2)
  - INTENTIONAL DRUG MISUSE [None]
  - PERIPHERAL ISCHAEMIA [None]
